FAERS Safety Report 4913805-5 (Version None)
Quarter: 2006Q1

REPORT INFORMATION
  Report Type: 
  Country: None (occurrence: None)
  Receive Date: 20060216
  Receipt Date: 20060209
  Transmission Date: 20060701
  Serious: Yes (Hospitalization)
  Sender: FDA-Public Use
  Company Number: FR-AVENTIS-200610523FR

PATIENT
  Age: 78 Year
  Sex: Female
  Weight: 56 kg

DRUGS (14)
  1. LOVENOX [Suspect]
     Indication: ATRIAL FIBRILLATION
     Route: 058
     Dates: end: 20051201
  2. LOVENOX [Suspect]
     Indication: ATRIAL FLUTTER
     Route: 058
     Dates: end: 20051201
  3. KARDEGIC [Suspect]
     Route: 048
     Dates: end: 20051201
  4. PREVISCAN [Suspect]
     Indication: ATRIAL FIBRILLATION
     Route: 048
     Dates: start: 20051130, end: 20051201
  5. PREVISCAN [Suspect]
     Indication: ATRIAL FLUTTER
     Route: 048
     Dates: start: 20051130, end: 20051201
  6. PLAVIX [Suspect]
     Indication: CEREBROVASCULAR DISORDER
     Route: 048
  7. CORDARONE [Concomitant]
     Indication: ATRIAL FIBRILLATION
     Route: 048
  8. CORDARONE [Concomitant]
     Indication: ATRIAL FLUTTER
     Route: 048
  9. HYZAAR [Concomitant]
     Indication: HYPERTENSION
     Route: 048
  10. TAHOR [Concomitant]
     Route: 048
  11. TARDYFERON [Concomitant]
     Route: 048
  12. SELOKEN [Concomitant]
     Route: 048
  13. IKOREL [Concomitant]
     Route: 048
  14. AMLOR [Concomitant]
     Route: 048

REACTIONS (3)
  - ANAEMIA [None]
  - CHEST PAIN [None]
  - HAEMATOMA [None]
